FAERS Safety Report 7280628-4 (Version None)
Quarter: 2011Q1

REPORT INFORMATION
  Report Type: 
  Country: None (occurrence: None)
  Receive Date: 20110203
  Receipt Date: 20110203
  Transmission Date: 20110831
  Serious: Yes (Other)
  Sender: FDA-Public Use
  Company Number: None

PATIENT
  Age: 47 Year
  Sex: Female
  Weight: 86.1834 kg

DRUGS (1)
  1. TAMIFLU [Suspect]
     Indication: INFLUENZA
     Dosage: 75MG ONE TWICE DAILY
     Dates: start: 20110131, end: 20110201

REACTIONS (5)
  - DYSPNOEA [None]
  - HEADACHE [None]
  - HALLUCINATION [None]
  - CONFUSIONAL STATE [None]
  - URTICARIA [None]
